FAERS Safety Report 4732087-0 (Version None)
Quarter: 2005Q3

REPORT INFORMATION
  Report Type: 
  Country: None (occurrence: None)
  Receive Date: 20050725
  Receipt Date: 20040909
  Transmission Date: 20060218
  Serious: Yes (Other)
  Sender: FDA-Public Use
  Company Number: K200401398

PATIENT
  Age: 69 Year
  Sex: Female
  Weight: 83.9 kg

DRUGS (1)
  1. INTAL [Suspect]
     Indication: ASTHMA EXACERBATION PROPHYLAXIS
     Dosage: INHALATION
     Route: 055
     Dates: start: 19950101, end: 19950101

REACTIONS (3)
  - ANGIONEUROTIC OEDEMA [None]
  - HYPERSENSITIVITY [None]
  - URTICARIA [None]
